FAERS Safety Report 7984158-3 (Version None)
Quarter: 2011Q4

REPORT INFORMATION
  Report Type: 
  Country: None (occurrence: None)
  Receive Date: 20111214
  Receipt Date: 20111208
  Transmission Date: 20120403
  Serious: Yes (Hospitalization)
  Sender: FDA-Public Use
  Company Number: 2011MA017469

PATIENT
  Age: 26 Year
  Sex: Female

DRUGS (4)
  1. LYRICA [Suspect]
     Dosage: PO
     Route: 048
  2. DIAZEPAM [Suspect]
     Dosage: PO
     Route: 048
  3. ZYPREXA [Suspect]
     Dosage: PO
     Route: 048
  4. ESCITALOPRAM OXALATE [Suspect]
     Dosage: PO
     Route: 048

REACTIONS (5)
  - EMOTIONAL DISTRESS [None]
  - ANXIETY [None]
  - MULTIPLE DRUG OVERDOSE [None]
  - TOXICITY TO VARIOUS AGENTS [None]
  - FATIGUE [None]
